FAERS Safety Report 9192394 (Version 2)
Quarter: 2013Q2

REPORT INFORMATION
  Report Type: Spontaneous
  Country: IT (occurrence: IT)
  Receive Date: 20130327
  Receipt Date: 20130522
  Transmission Date: 20140414
  Serious: Yes (Hospitalization, Other)
  Sender: FDA-Public Use
  Company Number: IT-ELI_LILLY_AND_COMPANY-IT201303006086

PATIENT
  Age: 43 Year
  Sex: Female

DRUGS (4)
  1. ZYPREXA [Suspect]
     Indication: PSYCHOTIC DISORDER
     Dosage: 10 MG, UNKNOWN
     Route: 048
     Dates: end: 20130123
  2. ZYPREXA [Suspect]
     Dosage: 28 DF, SINGLE
     Dates: start: 20130123, end: 20130123
  3. IBUPROFEN [Concomitant]
     Dosage: 30 DF, SINGLE
     Route: 048
     Dates: start: 20130123, end: 20130123
  4. SERENACE [Concomitant]
     Dosage: 1 DF, UNKNOWN
     Route: 048

REACTIONS (4)
  - Toxicity to various agents [Recovered/Resolved]
  - Euphoric mood [Recovered/Resolved]
  - Sopor [Recovered/Resolved]
  - Intentional overdose [Recovered/Resolved]
